FAERS Safety Report 7065576-7 (Version None)
Quarter: 2010Q4

REPORT INFORMATION
  Report Type: 
  Country: None (occurrence: None)
  Receive Date: 20101027
  Receipt Date: 20101021
  Transmission Date: 20110411
  Serious: Yes (Hospitalization)
  Sender: FDA-Public Use
  Company Number: US-BRISTOL-MYERS SQUIBB COMPANY-15344484

PATIENT
  Age: 52 Year
  Sex: Female
  Weight: 64 kg

DRUGS (1)
  1. IXABEPILONE [Suspect]
     Indication: ADENOCARCINOMA OF THE CERVIX
     Dosage: 6O MINS ON DAY 1-5,TOTAL52 MG,LAST ADMINS ON11SEP10
     Route: 042
     Dates: start: 20100817

REACTIONS (3)
  - ARTHRITIS [None]
  - DEVICE RELATED INFECTION [None]
  - JOINT EFFUSION [None]
